FAERS Safety Report 18264280 (Version 2)
Quarter: 2020Q3

REPORT INFORMATION
  Report Type: Spontaneous
  Country: US (occurrence: US)
  Receive Date: 20200914
  Receipt Date: 20200915
  Transmission Date: 20201103
  Serious: No
  Sender: FDA-Public Use
  Company Number: US-PFIZER INC-2020351377

PATIENT
  Age: 58 Year
  Sex: Female
  Weight: 86.18 kg

DRUGS (1)
  1. DILANTIN [Suspect]
     Active Substance: PHENYTOIN
     Indication: SEIZURE
     Dosage: 200 MG, 1X/DAY (TWO 100 MG CAPSULES ONCE A DAY)

REACTIONS (3)
  - Therapeutic product effect decreased [Not Recovered/Not Resolved]
  - Aura [Not Recovered/Not Resolved]
  - Malaise [Unknown]

NARRATIVE: CASE EVENT DATE: 20200910
